FAERS Safety Report 8221188-0 (Version None)
Quarter: 2012Q1

REPORT INFORMATION
  Report Type: 
  Country: None (occurrence: None)
  Receive Date: 20120320
  Receipt Date: 20120309
  Transmission Date: 20120608
  Serious: Yes (Hospitalization)
  Sender: FDA-Public Use
  Company Number: PHHY2011FR65680

PATIENT
  Age: 33 Year
  Sex: Female

DRUGS (6)
  1. SUBUTEX [Suspect]
     Dosage: 12 MG, QD (4 MG INTRAVENOUS)
     Route: 042
  2. METHYLENEDIOXYMETHAMPHETAMINE [Concomitant]
     Dosage: UNK UKN, UNK
  3. RITALIN [Suspect]
     Dosage: 10 MG, QD
     Route: 042
     Dates: start: 20110101
  4. METAMPHETAMINE [Suspect]
     Dosage: 2 G, QW
  5. LSD [Concomitant]
     Dosage: UNK UKN, UNK
  6. RITALIN [Suspect]
     Dosage: 80 MG, QD
     Route: 048

REACTIONS (3)
  - DRUG ABUSE [None]
  - INTENTIONAL DRUG MISUSE [None]
  - DRUG DEPENDENCE [None]
